FAERS Safety Report 7093439-X (Version None)
Quarter: 2010Q4

REPORT INFORMATION
  Report Type: 
  Country: None (occurrence: None)
  Receive Date: 20101110
  Receipt Date: 20101012
  Transmission Date: 20110411
  Serious: Yes (Other)
  Sender: FDA-Public Use
  Company Number: JP-AMGEN-QUU437145

PATIENT

DRUGS (7)
  1. ENBREL [Suspect]
     Indication: RHEUMATOID ARTHRITIS
     Dosage: 25 MG, 2 TIMES/WK
     Route: 058
     Dates: start: 20071228, end: 20091017
  2. ENBREL [Suspect]
     Route: 058
     Dates: start: 20091222, end: 20100811
  3. LOXONIN [Concomitant]
     Indication: RHEUMATOID ARTHRITIS
     Route: 048
     Dates: start: 20071228
  4. PROTECADIN [Concomitant]
     Indication: GASTRIC ULCER
     Route: 048
     Dates: start: 20071228
  5. SALIGREN [Concomitant]
     Indication: SJOGREN'S SYNDROME
     Route: 048
     Dates: start: 20071228
  6. PREDNISOLONE [Concomitant]
     Indication: RHEUMATOID ARTHRITIS
     Route: 048
     Dates: start: 20071228
  7. RIMATIL [Concomitant]
     Indication: RHEUMATOID ARTHRITIS
     Route: 048
     Dates: start: 20071228

REACTIONS (4)
  - ARTHRITIS BACTERIAL [None]
  - DEVICE RELATED INFECTION [None]
  - JOINT DESTRUCTION [None]
  - PNEUMONIA [None]
